FAERS Safety Report 6095481-4 (Version None)
Quarter: 2009Q1

REPORT INFORMATION
  Report Type: 
  Country: None (occurrence: None)
  Receive Date: 20090227
  Receipt Date: 20080429
  Transmission Date: 20090719
  Serious: No
  Sender: FDA-Public Use
  Company Number: A0722132A

PATIENT
  Age: 45 Year
  Sex: Female

DRUGS (2)
  1. LAMICTAL [Suspect]
     Indication: BIPOLAR DISORDER
     Dosage: 175MG PER DAY
     Route: 048
     Dates: start: 20071201
  2. SEROQUEL [Concomitant]
     Dosage: 600MGD PER DAY
     Route: 048

REACTIONS (6)
  - INCREASED UPPER AIRWAY SECRETION [None]
  - LYMPH NODE PALPABLE [None]
  - LYMPHADENOPATHY [None]
  - OROPHARYNGEAL PAIN [None]
  - PHARYNGEAL INFLAMMATION [None]
  - VIRAL PHARYNGITIS [None]
